FAERS Safety Report 6710486-5 (Version None)
Quarter: 2010Q2

REPORT INFORMATION
  Report Type: 
  Country: None (occurrence: None)
  Receive Date: 20100430
  Receipt Date: 20100419
  Transmission Date: 20101027
  Serious: Yes (Death)
  Sender: FDA-Public Use
  Company Number: 2010SP022545

PATIENT
  Age: 28 Year
  Sex: Male

DRUGS (7)
  1. MIRTAZAPINE [Suspect]
     Indication: DRUG USE FOR UNKNOWN INDICATION
  2. AMITRIPTYLINE HYDROCHLORIDE [Suspect]
     Indication: DRUG USE FOR UNKNOWN INDICATION
  3. TRAMADOL HCL [Suspect]
     Indication: DRUG USE FOR UNKNOWN INDICATION
  4. DIAZEPAM [Concomitant]
  5. OXAZEPAM [Concomitant]
  6. TETRAHYDROCANNABINOL [Concomitant]
  7. AMPHETAMINE SULFATE [Concomitant]

REACTIONS (5)
  - DRUG SCREEN POSITIVE [None]
  - DRUG TOXICITY [None]
  - HEPATITIS C [None]
  - PULMONARY OEDEMA [None]
  - SEROTONIN SYNDROME [None]
